FAERS Safety Report 6900844-8 (Version None)
Quarter: 2010Q3

REPORT INFORMATION
  Report Type: 
  Country: None (occurrence: None)
  Receive Date: 20100803
  Receipt Date: 20100722
  Transmission Date: 20110219
  Serious: Yes (Death, Hospitalization)
  Sender: FDA-Public Use
  Company Number: A0785712A

PATIENT
  Age: 61 Year
  Sex: Male
  Weight: 81.8 kg

DRUGS (5)
  1. AVANDIA [Suspect]
     Dosage: 4MG TWICE PER DAY
     Route: 048
     Dates: end: 20080401
  2. DILTIAZEM [Concomitant]
  3. GLYBURIDE AND METFORMIN HYDROCHLORIDE [Concomitant]
  4. LOVASTATIN [Concomitant]
  5. PENTOXIFYLLINE [Concomitant]

REACTIONS (3)
  - CARDIO-RESPIRATORY ARREST [None]
  - CONVULSION [None]
  - ISCHAEMIC STROKE [None]
